FAERS Safety Report 6984074-X (Version None)
Quarter: 2010Q3

REPORT INFORMATION
  Report Type: 
  Country: None (occurrence: None)
  Receive Date: 20100915
  Receipt Date: 20090615
  Transmission Date: 20110219
  Serious: No
  Sender: FDA-Public Use
  Company Number: US-WYE-H09316209

PATIENT
  Sex: Female

DRUGS (6)
  1. PRISTIQ [Suspect]
     Indication: DEPRESSION
     Route: 048
     Dates: start: 20090504, end: 20090101
  2. PRISTIQ [Suspect]
     Indication: ANXIETY
  3. LEXAPRO [Concomitant]
  4. AMITRIPTYLINE HCL [Concomitant]
  5. KLONOPIN [Concomitant]
  6. PERPHENAZINE [Concomitant]

REACTIONS (2)
  - ANXIETY [None]
  - CONDITION AGGRAVATED [None]
